FAERS Safety Report 6218235-4 (Version None)
Quarter: 2009Q2

REPORT INFORMATION
  Report Type: 
  Country: None (occurrence: None)
  Receive Date: 20090608
  Receipt Date: 20090527
  Transmission Date: 20091009
  Serious: Yes (Other)
  Sender: FDA-Public Use
  Company Number: US-PFIZER INC-2009221469

PATIENT
  Sex: Female
  Weight: 58.967 kg

DRUGS (2)
  1. CHANTIX [Suspect]
     Indication: SMOKING CESSATION THERAPY
     Dosage: 1 MG, 2X/DAY
     Dates: start: 20090430
  2. NEXIUM [Concomitant]
     Dosage: UNK

REACTIONS (2)
  - EYE SWELLING [None]
  - SWELLING FACE [None]
